FAERS Safety Report 7399038-4 (Version None)
Quarter: 2011Q2

REPORT INFORMATION
  Report Type: 
  Country: None (occurrence: None)
  Receive Date: 20110407
  Receipt Date: 20110330
  Transmission Date: 20111010
  Serious: Yes (Hospitalization, Other)
  Sender: FDA-Public Use
  Company Number: US-ABBOTT-11P-163-0715733-00

PATIENT
  Weight: 102.15 kg

DRUGS (8)
  1. PREDNISONE [Concomitant]
     Indication: RHEUMATOID ARTHRITIS
  2. HYDROXYZINE [Concomitant]
     Indication: PRODUCT USED FOR UNKNOWN INDICATION
  3. ARAVA [Concomitant]
     Indication: RHEUMATOID ARTHRITIS
  4. HUMIRA [Suspect]
     Indication: RHEUMATOID ARTHRITIS
     Dates: start: 20080101, end: 20110101
  5. TRAZODONE HCL [Concomitant]
     Indication: ANXIETY
  6. HUMIRA [Suspect]
     Dates: start: 20110312
  7. DICLOFENAC [Concomitant]
     Indication: RHEUMATOID ARTHRITIS
  8. LISINOPRIL [Concomitant]
     Indication: HYPERTENSION

REACTIONS (9)
  - ACCIDENT [None]
  - TIBIA FRACTURE [None]
  - MUSCLE INJURY [None]
  - PAIN [None]
  - JOINT DISLOCATION [None]
  - JOINT SWELLING [None]
  - JOINT STIFFNESS [None]
  - NERVE INJURY [None]
  - LIGAMENT RUPTURE [None]
